FAERS Safety Report 12960980 (Version 1)
Quarter: 2016Q4

REPORT INFORMATION
  Report Type: Spontaneous
  Country: US (occurrence: US)
  Receive Date: 20161121
  Receipt Date: 20161121
  Transmission Date: 20170207
  Serious: No
  Sender: FDA-Public Use
  Company Number: US-UPSHER-SMITH LABORATORIES, INC.-16001608

PATIENT
  Age: 57 Year
  Sex: Female

DRUGS (3)
  1. JANTOVEN [Suspect]
     Active Substance: WARFARIN SODIUM
     Indication: DEEP VEIN THROMBOSIS
     Dosage: 7.5 MG DAILY M-SAT; 10 MG SUN
     Route: 048
     Dates: start: 201608
  2. JANTOVEN [Suspect]
     Active Substance: WARFARIN SODIUM
     Dosage: 5 MG DAILY
     Route: 048
     Dates: start: 201606, end: 201608
  3. VITAMIN D [Concomitant]
     Active Substance: CHOLECALCIFEROL
     Dosage: UNK, UNK
     Route: 048

REACTIONS (2)
  - Flatulence [Not Recovered/Not Resolved]
  - Abdominal distension [Not Recovered/Not Resolved]

NARRATIVE: CASE EVENT DATE: 201608
